FAERS Safety Report 8279170-3 (Version None)
Quarter: 2012Q2

REPORT INFORMATION
  Report Type: 
  Country: None (occurrence: None)
  Receive Date: 20120412
  Receipt Date: 20111028
  Transmission Date: 20120825
  Serious: No
  Sender: FDA-Public Use
  Company Number: US-ASTRAZENECA-2011SE65650

PATIENT
  Sex: Female

DRUGS (12)
  1. SULFAMETHOXAZOLE AND TRIMETHOPRIM [Concomitant]
  2. NEXIUM [Suspect]
     Route: 048
  3. CRESTOR [Suspect]
     Route: 048
  4. PROTONIX [Concomitant]
  5. KAPIDEX [Concomitant]
  6. RAMIPRIL [Concomitant]
  7. PREMARIN [Concomitant]
  8. IBUPROFEN [Concomitant]
  9. DEXILANT [Concomitant]
  10. FOLBIC TAB [Concomitant]
  11. SERTRALINE HYDROCHLORIDE [Concomitant]
  12. LEVOTHYROXINE SODIUM [Concomitant]

REACTIONS (5)
  - DRUG DOSE OMISSION [None]
  - BLOOD CHOLESTEROL INCREASED [None]
  - FEELING ABNORMAL [None]
  - GASTROOESOPHAGEAL REFLUX DISEASE [None]
  - INAPPROPRIATE SCHEDULE OF DRUG ADMINISTRATION [None]
